FAERS Safety Report 10229415 (Version 1)
Quarter: 2014Q2

REPORT INFORMATION
  Report Type: Spontaneous
  Country: US (occurrence: None)
  Receive Date: 20140609
  Receipt Date: 20140609
  Transmission Date: 20141212
  Serious: Yes (Hospitalization)
  Sender: FDA-Public Use
  Company Number: UTC-044737

PATIENT
  Age: 37 Year
  Sex: Female
  Weight: 112.9 kg

DRUGS (11)
  1. REMODULIN [Suspect]
     Indication: PULMONARY ARTERIAL HYPERTENSION
     Route: 058
     Dates: start: 20130208
  2. WARFARIN (WARFARIN) [Concomitant]
  3. ADCIRCA (TADALAFIL) [Concomitant]
  4. AMIODARONE (AMIODARONE) [Concomitant]
  5. ALBUTEROL HFA (SALBUTAMOL) [Concomitant]
  6. LASIX /00032601/ (FUROSEMIDE) UNK, UNKUNK [Concomitant]
  7. XANAX (ALPRAZOLAM) [Concomitant]
  8. ULORIC (FEBUXOSTAT) [Concomitant]
  9. NORCO (HYDROCODONE BITARTRATE, PARACETAMOL) [Concomitant]
  10. POTASSIUM CHLORIDE (POTASSIUM CHLORIDE) [Concomitant]
  11. PSEUDOEPHEDRINE (PSEUDOEPHEDRINE) [Concomitant]

REACTIONS (10)
  - Diarrhoea [None]
  - Pulmonary arterial hypertension [None]
  - Atrial tachycardia [None]
  - Fluid overload [None]
  - Microcytic anaemia [None]
  - Dyspnoea [None]
  - Weight increased [None]
  - Cystitis [None]
  - Nausea [None]
  - Right ventricular failure [None]
